FAERS Safety Report 8906362 (Version 1)
Quarter: 2012Q4

REPORT INFORMATION
  Report Type: Spontaneous
  Country: US (occurrence: None)
  Receive Date: 20121109
  Receipt Date: 20121109
  Transmission Date: 20130627
  Serious: Yes (Other)
  Sender: FDA-Public Use
  Company Number: None

PATIENT
  Age: 82 Year
  Sex: Female
  Weight: 86.18 kg

DRUGS (4)
  1. TRICOR [Suspect]
     Dates: start: 20120703
  2. TRICOR [Suspect]
     Dates: start: 20120703
  3. TRICOR [Suspect]
     Dates: start: 20120824
  4. TRICOR [Suspect]
     Dates: start: 20120824

REACTIONS (3)
  - Oedema peripheral [None]
  - Pruritus [None]
  - Urticaria [None]
